FAERS Safety Report 17979860 (Version 1)
Quarter: 2020Q3

REPORT INFORMATION
  Report Type: Spontaneous
  Country: FR (occurrence: FR)
  Receive Date: 20200703
  Receipt Date: 20200703
  Transmission Date: 20201103
  Serious: Yes (Hospitalization, Other)
  Sender: FDA-Public Use
  Company Number: FR-BRISTOL-MYERS SQUIBB COMPANY-BMS-2019-126761

PATIENT
  Age: 41 Year
  Sex: Male

DRUGS (1)
  1. BELATACEPT [Suspect]
     Active Substance: BELATACEPT
     Indication: RENAL TRANSPLANT
     Dosage: 5 MILLIGRAM/KILOGRAM
     Route: 042

REACTIONS (4)
  - Off label use [Unknown]
  - Cytomegalovirus hepatitis [Unknown]
  - Cytomegalovirus gastritis [Unknown]
  - Cytomegalovirus chorioretinitis [Unknown]
